FAERS Safety Report 23259323 (Version 1)
Quarter: 2023Q4

REPORT INFORMATION
  Report Type: Spontaneous
  Country: US (occurrence: None)
  Receive Date: 20231204
  Receipt Date: 20231204
  Transmission Date: 20240110
  Serious: Yes (Hospitalization)
  Sender: FDA-Public Use
  Company Number: None

PATIENT
  Age: 73 Year
  Sex: Male

DRUGS (2)
  1. CLONIDINE HYDROCHLORIDE [Suspect]
     Active Substance: CLONIDINE HYDROCHLORIDE
     Dates: start: 20231024, end: 20231031
  2. METOPROLOL SUCCINATE [Concomitant]
     Active Substance: METOPROLOL SUCCINATE
     Dates: start: 20230228, end: 20231031

REACTIONS (7)
  - Bradycardia [None]
  - Blood pressure systolic increased [None]
  - Dyspnoea [None]
  - Chest pain [None]
  - Atrial fibrillation [None]
  - Sinus node dysfunction [None]
  - Therapy cessation [None]

NARRATIVE: CASE EVENT DATE: 20221031
